FAERS Safety Report 12846096 (Version 1)
Quarter: 2016Q4

REPORT INFORMATION
  Report Type: Report from Study
  Country: JP (occurrence: JP)
  Receive Date: 20161014
  Receipt Date: 20161014
  Transmission Date: 20170207
  Serious: Yes (Disabling, Other)
  Sender: FDA-Public Use
  Company Number: JP-BRISTOL-MYERS SQUIBB COMPANY-16841488

PATIENT
  Age: 67 Year
  Sex: Male

DRUGS (7)
  1. ABILIFY [Suspect]
     Active Substance: ARIPIPRAZOLE
     Indication: SCHIZOPHRENIA
     Dosage: 24 MG, UNK
     Route: 048
     Dates: start: 20120606, end: 20120712
  2. VALERIN                            /00228502/ [Concomitant]
     Active Substance: VALPROATE SODIUM
     Dosage: 400 MG, QD
     Route: 048
     Dates: start: 20120508, end: 20120510
  3. VALERIN                            /00228502/ [Concomitant]
     Active Substance: VALPROATE SODIUM
     Dosage: 1000 MG, QD
     Route: 048
     Dates: start: 20120516, end: 20120712
  4. VALERIN                            /00228502/ [Concomitant]
     Active Substance: VALPROATE SODIUM
     Indication: SCHIZOPHRENIA
     Dosage: UNK
     Route: 048
     Dates: start: 20120508, end: 20120712
  5. RIVOTRIL [Concomitant]
     Active Substance: CLONAZEPAM
     Indication: SCHIZOPHRENIA
     Dosage: 1 MG, QD
     Route: 048
     Dates: start: 20120709, end: 20120712
  6. VALERIN                            /00228502/ [Concomitant]
     Active Substance: VALPROATE SODIUM
     Dosage: 800 MG, QD
     Route: 048
     Dates: start: 20120511, end: 20120515
  7. ARIPIPRAZOLE. [Suspect]
     Active Substance: ARIPIPRAZOLE
     Indication: SCHIZOPHRENIA
     Dosage: 24 MG, QD
     Route: 048
     Dates: start: 20120606, end: 20120712

REACTIONS (1)
  - Dysphagia [Recovering/Resolving]

NARRATIVE: CASE EVENT DATE: 20120712
